FAERS Safety Report 24188189 (Version 1)
Quarter: 2024Q3

REPORT INFORMATION
  Report Type: Report from Study
  Country: IT (occurrence: IT)
  Receive Date: 20240808
  Receipt Date: 20240808
  Transmission Date: 20241016
  Serious: Yes (Other)
  Sender: ACCORD
  Company Number: None

PATIENT
  Age: 81 Year
  Sex: Male

DRUGS (8)
  1. RAMIPRIL [Suspect]
     Active Substance: RAMIPRIL
     Indication: Product used for unknown indication
  2. CARDURA [Suspect]
     Active Substance: DOXAZOSIN MESYLATE
     Indication: Product used for unknown indication
  3. EZETIMIBE\ROSUVASTATIN [Concomitant]
     Active Substance: EZETIMIBE\ROSUVASTATIN
  4. METOPROLOL [Concomitant]
     Active Substance: METOPROLOL
  5. CIPRALEX [Concomitant]
     Active Substance: ESCITALOPRAM OXALATE
  6. LEVOTHYROXINE SODIUM [Concomitant]
     Active Substance: LEVOTHYROXINE SODIUM
  7. TICAGRELOR [Concomitant]
     Active Substance: TICAGRELOR
  8. ASPIRIN [Concomitant]
     Active Substance: ASPIRIN

REACTIONS (2)
  - Chronic kidney disease [Recovering/Resolving]
  - Hypotension [Recovering/Resolving]

NARRATIVE: CASE EVENT DATE: 20240720
